FAERS Safety Report 6675457-6 (Version None)
Quarter: 2010Q2

REPORT INFORMATION
  Report Type: 
  Country: None (occurrence: None)
  Receive Date: 20100409
  Receipt Date: 20100406
  Transmission Date: 20101027
  Serious: Yes (Hospitalization)
  Sender: FDA-Public Use
  Company Number: A0853777A

PATIENT
  Age: 19 Year
  Sex: Female

DRUGS (3)
  1. LAMICTAL CD [Suspect]
     Indication: BIPOLAR DISORDER
     Dosage: 1TAB PER DAY
     Route: 048
     Dates: end: 20100402
  2. SEROQUEL [Concomitant]
  3. BENTYL [Concomitant]

REACTIONS (5)
  - COUGH [None]
  - DYSPNOEA [None]
  - EYE PRURITUS [None]
  - RASH GENERALISED [None]
  - STEVENS-JOHNSON SYNDROME [None]
